FAERS Safety Report 8121047-8 (Version None)
Quarter: 2012Q1

REPORT INFORMATION
  Report Type: 
  Country: None (occurrence: None)
  Receive Date: 20120208
  Receipt Date: 20120127
  Transmission Date: 20120608
  Serious: Yes (Hospitalization, Other)
  Sender: FDA-Public Use
  Company Number: CA-JNJFOC-20120201675

PATIENT
  Sex: Female
  Weight: 116 kg

DRUGS (11)
  1. REMICADE [Suspect]
     Dosage: 36TH INFUSION
     Route: 042
     Dates: start: 20111216
  2. EFFEXOR [Concomitant]
     Route: 065
  3. BIRTH CONTROL PILL [Concomitant]
     Route: 048
  4. ALBUTEROL SULFATE AUTOHALER [Concomitant]
     Route: 065
  5. FLOVENT [Concomitant]
     Route: 065
  6. MULTI-VITAMINS [Concomitant]
     Route: 065
  7. REMICADE [Suspect]
     Indication: CROHN'S DISEASE
     Route: 042
     Dates: start: 20070629
  8. ACETAMINOPHEN [Concomitant]
     Route: 065
  9. LORAZEPAM [Concomitant]
     Dosage: WHEN REQUIRED
     Route: 065
  10. GRAVOL TAB [Concomitant]
     Route: 065
  11. RABEPRAZOLE SODIUM [Concomitant]
     Route: 065

REACTIONS (14)
  - MIGRAINE [None]
  - VOMITING [None]
  - HAEMATOCHEZIA [None]
  - BORDERLINE PERSONALITY DISORDER [None]
  - ASTHMA [None]
  - DIARRHOEA [None]
  - VERTIGO [None]
  - FIBROMYALGIA [None]
  - EATING DISORDER [None]
  - DEPRESSION [None]
  - ARTHRALGIA [None]
  - SUICIDAL IDEATION [None]
  - RESTLESS LEGS SYNDROME [None]
  - ANXIETY DISORDER [None]
